FAERS Safety Report 6412028-0 (Version None)
Quarter: 2009Q4

REPORT INFORMATION
  Report Type: 
  Country: None (occurrence: None)
  Receive Date: 20091023
  Receipt Date: 20091014
  Transmission Date: 20100525
  Serious: Yes (Death, Life-Threatening, Other)
  Sender: FDA-Public Use
  Company Number: GB-PFIZER INC-2009254188

PATIENT

DRUGS (1)
  1. ZYVOX [Suspect]
     Dosage: 600 MG, 2X/DAY
     Dates: start: 20060101

REACTIONS (3)
  - DEATH [None]
  - HAEMORRHAGE [None]
  - THROMBOCYTOPENIA [None]
